FAERS Safety Report 20198748 (Version 1)
Quarter: 2021Q4

REPORT INFORMATION
  Report Type: Spontaneous
  Country: FI (occurrence: FI)
  Receive Date: 20211217
  Receipt Date: 20211217
  Transmission Date: 20220303
  Serious: Yes (Hospitalization)
  Sender: FDA-Public Use
  Company Number: FI-BoehringerIngelheim-2021-BI-144301

PATIENT

DRUGS (1)
  1. JARDIANCE [Suspect]
     Active Substance: EMPAGLIFLOZIN
     Indication: Cardiac failure
     Dates: start: 202111, end: 202111

REACTIONS (3)
  - Hyperkalaemia [Recovered/Resolved]
  - Blood creatinine increased [Recovered/Resolved]
  - Acidosis [Recovered/Resolved]
